FAERS Safety Report 24358414 (Version 1)
Quarter: 2024Q3

REPORT INFORMATION
  Report Type: Spontaneous
  Country: GR (occurrence: GR)
  Receive Date: 20240924
  Receipt Date: 20240924
  Transmission Date: 20241017
  Serious: No
  Sender: PFIZER
  Company Number: GR-PFIZER INC-PV202400121596

PATIENT
  Age: 14 Year
  Sex: Male
  Weight: 38 kg

DRUGS (1)
  1. GENOTROPIN [Suspect]
     Active Substance: SOMATROPIN
     Indication: Growth hormone deficiency
     Dosage: 8 MG, WEEKLY / 7 DAYS
     Route: 058
     Dates: start: 202309

REACTIONS (3)
  - Device leakage [Not Recovered/Not Resolved]
  - Device physical property issue [Not Recovered/Not Resolved]
  - Poor quality device used [Unknown]

NARRATIVE: CASE EVENT DATE: 20240914
